FAERS Safety Report 25893717 (Version 1)
Quarter: 2025Q4

REPORT INFORMATION
  Report Type: Spontaneous
  Country: EU (occurrence: EU)
  Receive Date: 20251008
  Receipt Date: 20251008
  Transmission Date: 20260118
  Serious: Yes (Hospitalization)
  Sender: CELLTRION
  Company Number: None

PATIENT

DRUGS (13)
  1. YUFLYMA [Suspect]
     Active Substance: ADALIMUMAB-AATY
     Indication: Rheumatoid arthritis
     Dosage: 40MG PER WEEK.2 DOSES ADMINISTERED ON TOTAL.
     Route: 058
     Dates: start: 20250826, end: 20250909
  2. YUFLYMA [Suspect]
     Active Substance: ADALIMUMAB-AATY
  3. ARTANE [Concomitant]
     Active Substance: TRIHEXYPHENIDYL HYDROCHLORIDE
     Indication: Schizophrenia
     Dosage: 4MG PER DAY
     Route: 048
     Dates: start: 20200417
  4. ATORVASTATIN [Concomitant]
     Active Substance: ATORVASTATIN
     Indication: Dyslipidaemia
     Dosage: 20MG PER DAY
     Route: 048
     Dates: start: 20200312
  5. DIAZEPAM [Concomitant]
     Active Substance: DIAZEPAM
     Indication: Schizophrenia
     Dosage: 5MG PER DAY
     Route: 048
     Dates: start: 20201218
  6. HALOPERIDOL [Concomitant]
     Active Substance: HALOPERIDOL
     Indication: Schizophrenia
     Dosage: 10MG PER DAY
     Route: 048
     Dates: start: 20230714
  7. MEDROL [Concomitant]
     Active Substance: METHYLPREDNISOLONE
     Indication: Rheumatoid arthritis
     Dosage: 8MG PER DAY
     Route: 048
     Dates: start: 20180412
  8. METOPROLOL [Concomitant]
     Active Substance: METOPROLOL
     Indication: Hypertension
     Dosage: 95MG PER DAY
     Route: 048
     Dates: start: 20170101
  9. MOXONIDINE [Concomitant]
     Active Substance: MOXONIDINE
     Indication: Hypertension
     Dosage: 0,4MG PER DAY
     Route: 048
     Dates: start: 20250721
  10. AMLODIPINE\INDAPAMIDE [Concomitant]
     Active Substance: AMLODIPINE\INDAPAMIDE
     Indication: Hypertension
     Dosage: 1 TABLET PER DAY
     Route: 048
     Dates: start: 20250820
  11. OLANZAPINE [Concomitant]
     Active Substance: OLANZAPINE
     Indication: Schizophrenia
     Dosage: 20MG PER DAY
     Route: 048
     Dates: start: 20201218
  12. PERINDOPRIL [Concomitant]
     Active Substance: PERINDOPRIL
     Indication: Hypertension
     Dosage: 10MG PER DAY
     Route: 048
     Dates: start: 20170101
  13. MELOXICAM [Concomitant]
     Active Substance: MELOXICAM
     Indication: Rheumatoid arthritis
     Dosage: 15MG PER DAY
     Route: 048
     Dates: start: 20190731

REACTIONS (3)
  - Muscular weakness [Not Recovered/Not Resolved]
  - Back pain [Not Recovered/Not Resolved]
  - Gait disturbance [Not Recovered/Not Resolved]

NARRATIVE: CASE EVENT DATE: 20250828
